FAERS Safety Report 17044576 (Version 2)
Quarter: 2020Q1

REPORT INFORMATION
  Report Type: Report from Study
  Country: US (occurrence: US)
  Receive Date: 20191118
  Receipt Date: 20200206
  Transmission Date: 20200409
  Serious: No
  Sender: FDA-Public Use
  Company Number: NVSC2019US039735

PATIENT
  Sex: Male

DRUGS (1)
  1. COSENTYX [Suspect]
     Active Substance: SECUKINUMAB
     Indication: PSORIASIS
     Dosage: 300 MG (0, 1, 2, 3, AND 4 THEN Q4W THEREAFTER)
     Route: 058
     Dates: start: 20190118

REACTIONS (1)
  - Therapeutic product effect incomplete [Unknown]
